FAERS Safety Report 10557121 (Version 3)
Quarter: 2014Q4

REPORT INFORMATION
  Report Type: Spontaneous
  Country: PT (occurrence: PT)
  Receive Date: 20141031
  Receipt Date: 20141212
  Transmission Date: 20150529
  Serious: No
  Sender: FDA-Public Use
  Company Number: PT-AMGEN-PRTSP2014070103

PATIENT
  Age: 38 Year
  Sex: Female
  Weight: 44 kg

DRUGS (2)
  1. ARANESP [Suspect]
     Active Substance: DARBEPOETIN ALFA
     Indication: ANAEMIA
     Dosage: 20 MUG, QWK
     Route: 058
     Dates: start: 20140727
  2. IRON [Concomitant]
     Active Substance: IRON

REACTIONS (1)
  - Haemoglobin decreased [Unknown]
